FAERS Safety Report 19082158 (Version 3)
Quarter: 2022Q2

REPORT INFORMATION
  Report Type: Spontaneous
  Country: IT (occurrence: IT)
  Receive Date: 20210401
  Receipt Date: 20220412
  Transmission Date: 20220720
  Serious: Yes (Life-Threatening, Hospitalization, Other)
  Sender: FDA-Public Use
  Company Number: IT-EMA-DD-20171212-DPRABHAKAR9P-114308

PATIENT
  Sex: Female

DRUGS (36)
  1. MELPHALAN [Suspect]
     Active Substance: MELPHALAN
     Indication: Autologous bone marrow transplantation therapy
     Dosage: 280 MILLIGRAM, ONCE A DAY
     Route: 041
     Dates: start: 20170530, end: 20170530
  2. CYTARABINE [Suspect]
     Active Substance: CYTARABINE
     Indication: Autologous bone marrow transplantation therapy
     Dosage: 400 MILLIGRAM, ONCE A DAY
     Route: 042
     Dates: start: 20170526
  3. CYTARABINE [Suspect]
     Active Substance: CYTARABINE
     Dosage: 400 MILLIGRAM, ONCE A DAY
     Route: 042
     Dates: start: 20170529
  4. ETOPOSIDE [Suspect]
     Active Substance: ETOPOSIDE
     Indication: Autologous bone marrow transplantation therapy
     Dosage: 400 MILLIGRAM, ONCE A DAY
     Route: 042
     Dates: start: 20170526, end: 20170529
  5. ETOPOSIDE [Suspect]
     Active Substance: ETOPOSIDE
     Dosage: 400 MILLIGRAM, ONCE A DAY
     Route: 042
     Dates: start: 20170529
  6. FOTEMUSTINE [Suspect]
     Active Substance: FOTEMUSTINE
     Indication: Product used for unknown indication
     Dosage: 300 MILLIGRAM, ONCE A DAY
     Route: 042
     Dates: start: 20170524, end: 20170525
  7. FOTEMUSTINE [Suspect]
     Active Substance: FOTEMUSTINE
     Dosage: 300 MILLIGRAM, ONCE A DAY
     Route: 042
     Dates: start: 20170525
  8. EMEND [Concomitant]
     Active Substance: APREPITANT
     Indication: Product used for unknown indication
     Dosage: UNK
     Route: 065
     Dates: start: 20170523, end: 20170527
  9. EMEND [Concomitant]
     Active Substance: APREPITANT
     Dosage: UNK
     Route: 065
     Dates: end: 20170527
  10. FUROSEMIDE SODIUM [Concomitant]
     Active Substance: FUROSEMIDE SODIUM
     Indication: Product used for unknown indication
     Dosage: 2400 MILLIGRAM
     Route: 048
     Dates: start: 20170523, end: 20170527
  11. FUROSEMIDE SODIUM [Concomitant]
     Active Substance: FUROSEMIDE SODIUM
     Dosage: UNK
     Route: 048
  12. FUROSEMIDE SODIUM [Concomitant]
     Active Substance: FUROSEMIDE SODIUM
     Dosage: 600 MILLIGRAM
     Route: 048
     Dates: start: 20170523, end: 20170623
  13. FUROSEMIDE SODIUM [Concomitant]
     Active Substance: FUROSEMIDE SODIUM
     Dosage: 1000 MILLIGRAM
     Route: 048
     Dates: start: 20170523, end: 20170606
  14. URSODIOL [Concomitant]
     Active Substance: URSODIOL
     Indication: Product used for unknown indication
     Dosage: UNK
     Route: 065
  15. URSODIOL [Concomitant]
     Active Substance: URSODIOL
     Dosage: 600 MILLIGRAM
     Route: 048
     Dates: start: 20170523, end: 20170623
  16. ACYCLOVIR [Concomitant]
     Active Substance: ACYCLOVIR
     Indication: Product used for unknown indication
     Dosage: UNK
     Route: 065
  17. ACYCLOVIR [Concomitant]
     Active Substance: ACYCLOVIR
     Dosage: 2400 MILLIGRAM
     Route: 048
     Dates: start: 20170523, end: 20170529
  18. NYSTATIN [Concomitant]
     Active Substance: NYSTATIN
     Indication: Product used for unknown indication
     Dosage: 30 MILLILITER
     Route: 048
     Dates: start: 20170523
  19. FLUCONAZOLE [Concomitant]
     Active Substance: FLUCONAZOLE
     Indication: Product used for unknown indication
     Dosage: 400 MILLIGRAM, ONCE A DAY
     Route: 065
     Dates: start: 20170523
  20. CIPROFLOXACIN [Concomitant]
     Active Substance: CIPROFLOXACIN
     Indication: Product used for unknown indication
     Dosage: UNK
     Route: 065
  21. CIPROFLOXACIN [Concomitant]
     Active Substance: CIPROFLOXACIN
     Dosage: 1000 MILLIGRAM
     Route: 048
     Dates: start: 20170523, end: 20170606
  22. HEPARIN SODIUM [Concomitant]
     Active Substance: HEPARIN SODIUM
     Indication: Product used for unknown indication
     Dosage: 8500 INTERNATIONAL UNIT
     Route: 058
     Dates: start: 20170523, end: 20170623
  23. ALOXI [Concomitant]
     Active Substance: PALONOSETRON HYDROCHLORIDE
     Indication: Product used for unknown indication
     Dosage: 1 DOSAGE FORM
     Route: 042
     Dates: start: 20170524, end: 20170527
  24. MAGNESIUM CHLORIDE [Concomitant]
     Active Substance: MAGNESIUM CHLORIDE
     Indication: Product used for unknown indication
     Dosage: 10 MILLILITER, ONCE A DAY
     Route: 065
     Dates: start: 20170525
  25. ALLOPURINOL [Concomitant]
     Active Substance: ALLOPURINOL
     Indication: Product used for unknown indication
     Dosage: 300 MILLIGRAM, ONCE A DAY
     Route: 065
     Dates: start: 20170526
  26. POTASSIUM CHLORIDE [Concomitant]
     Active Substance: POTASSIUM CHLORIDE
     Indication: Product used for unknown indication
     Dosage: 15 MILLILITER, ONCE A DAY
     Route: 065
     Dates: start: 20170524
  27. RANITIDINE HYDROCHLORIDE [Concomitant]
     Active Substance: RANITIDINE HYDROCHLORIDE
     Indication: Product used for unknown indication
     Dosage: 150 MILLIGRAM, ONCE A DAY
     Route: 048
     Dates: start: 20170523
  28. RANITIDINE HYDROCHLORIDE [Concomitant]
     Active Substance: RANITIDINE HYDROCHLORIDE
     Dosage: 150 MILLIGRAM, ONCE A DAY
     Route: 042
     Dates: start: 20170523, end: 20170602
  29. FUROSEMIDE SODIUM [Concomitant]
     Active Substance: FUROSEMIDE SODIUM
     Indication: Product used for unknown indication
     Dosage: 120 MILLIGRAM
     Route: 042
     Dates: start: 20170523, end: 20170620
  30. FUROSEMIDE SODIUM [Concomitant]
     Active Substance: FUROSEMIDE SODIUM
     Dosage: 150 MILLIGRAM
     Route: 042
     Dates: start: 20170523, end: 20170602
  31. FUROSEMIDE SODIUM [Concomitant]
     Active Substance: FUROSEMIDE SODIUM
     Dosage: 1 DOSAGE FORM
     Route: 042
     Dates: start: 20170524, end: 20170527
  32. FUROSEMIDE SODIUM [Concomitant]
     Active Substance: FUROSEMIDE SODIUM
     Indication: Product used for unknown indication
     Dosage: 15 MILLILITER
     Route: 065
  33. FUROSEMIDE SODIUM [Concomitant]
     Active Substance: FUROSEMIDE SODIUM
     Dosage: 400 MILLIGRAM
     Route: 065
  34. FUROSEMIDE SODIUM [Concomitant]
     Active Substance: FUROSEMIDE SODIUM
     Dosage: 10 MILLILITER
     Route: 065
  35. FUROSEMIDE SODIUM [Concomitant]
     Active Substance: FUROSEMIDE SODIUM
     Dosage: UNK
     Route: 065
     Dates: start: 20170523, end: 20170527
  36. FUROSEMIDE SODIUM [Concomitant]
     Active Substance: FUROSEMIDE SODIUM
     Dosage: 120 MILLIGRAM
     Route: 065
     Dates: start: 20170523, end: 20170620

REACTIONS (15)
  - Tonsillar haemorrhage [Unknown]
  - Tonsillitis [Unknown]
  - Mucosal inflammation [Recovering/Resolving]
  - Faeces soft [Recovering/Resolving]
  - Oropharyngeal pain [Recovered/Resolved]
  - Cough [Recovered/Resolved]
  - Neutropenia [Recovered/Resolved]
  - Erythema [Recovered/Resolved]
  - Pyrexia [Recovered/Resolved]
  - Vomiting [Recovered/Resolved]
  - Thrombocytopenia [Recovered/Resolved]
  - Off label use [Recovered/Resolved]
  - Product use in unapproved indication [Unknown]
  - Product administered to patient of inappropriate age [Unknown]
  - Nausea [Unknown]

NARRATIVE: CASE EVENT DATE: 20170101
